FAERS Safety Report 7535535-6 (Version None)
Quarter: 2011Q2

REPORT INFORMATION
  Report Type: 
  Country: None (occurrence: None)
  Receive Date: 20110609
  Receipt Date: 20110224
  Transmission Date: 20111010
  Serious: No
  Sender: FDA-Public Use
  Company Number: US-BAYER-2011-018281

PATIENT
  Age: 46 Year
  Sex: Female

DRUGS (2)
  1. MIRENA [Suspect]
     Indication: CONTRACEPTION
     Dosage: UNK
     Route: 015
     Dates: start: 20110223, end: 20110223
  2. MIRENA [Suspect]
     Indication: MENORRHAGIA

REACTIONS (4)
  - PROCEDURAL PAIN [None]
  - DEVICE DIFFICULT TO USE [None]
  - CERVIX DISORDER [None]
  - ANXIETY [None]
